FAERS Safety Report 9916505 (Version 2)
Quarter: 2014Q1

REPORT INFORMATION
  Report Type: Spontaneous
  Country: US (occurrence: US)
  Receive Date: 20140221
  Receipt Date: 20140305
  Transmission Date: 20141002
  Serious: Yes (Other)
  Sender: FDA-Public Use
  Company Number: US-JNJFOC-20140207613

PATIENT
  Age: 58 Year
  Sex: Female

DRUGS (3)
  1. LEVOFLOXACIN [Suspect]
     Indication: MYALGIA
     Dosage: FOR 5 DAYS
     Route: 065
  2. LEVOFLOXACIN [Suspect]
     Indication: COUGH
     Dosage: FOR 5 DAYS
     Route: 065
  3. LEVOFLOXACIN [Suspect]
     Indication: PYREXIA
     Dosage: FOR 5 DAYS
     Route: 065

REACTIONS (2)
  - Eosinophilic pneumonia [Recovering/Resolving]
  - Rash erythematous [Unknown]
